FAERS Safety Report 6097107-2 (Version None)
Quarter: 2009Q1

REPORT INFORMATION
  Report Type: 
  Country: None (occurrence: None)
  Receive Date: 20090225
  Receipt Date: 20080919
  Transmission Date: 20090719
  Serious: Yes (Disabling)
  Sender: FDA-Public Use
  Company Number: PI-02583

PATIENT
  Age: 41 Year
  Sex: Female

DRUGS (1)
  1. CHLORAPREP [Suspect]
     Indication: PREOPERATIVE CARE
     Dosage: 1.75 ML, ONCE, TOPICAL
     Route: 061
     Dates: start: 20080728

REACTIONS (3)
  - ERYTHEMA [None]
  - PRURITUS [None]
  - RASH PRURITIC [None]
